FAERS Safety Report 8329364-3 (Version None)
Quarter: 2012Q2

REPORT INFORMATION
  Report Type: 
  Country: None (occurrence: None)
  Receive Date: 20120502
  Receipt Date: 20120418
  Transmission Date: 20120825
  Serious: Yes (Hospitalization, Other)
  Sender: FDA-Public Use
  Company Number: CN-JNJFOC-20120500118

PATIENT
  Sex: Male

DRUGS (3)
  1. PALIPERIDONE [Suspect]
     Indication: SCHIZOPHRENIA
     Route: 048
     Dates: end: 20110523
  2. PALIPERIDONE [Suspect]
     Route: 048
     Dates: start: 20110323
  3. QUETIAPINE [Concomitant]
     Indication: SCHIZOPHRENIA
     Dosage: 200-400MG/DAY
     Route: 065

REACTIONS (2)
  - AFFECT LABILITY [None]
  - MENTAL DISORDER [None]
